FAERS Safety Report 6346499-5 (Version None)
Quarter: 2009Q3

REPORT INFORMATION
  Report Type: 
  Country: None (occurrence: None)
  Receive Date: 20090909
  Receipt Date: 20090828
  Transmission Date: 20100115
  Serious: Yes (Other)
  Sender: FDA-Public Use
  Company Number: ES-AMGEN-US362810

PATIENT
  Age: 70 Year
  Sex: Male

DRUGS (5)
  1. ENBREL [Suspect]
     Indication: ANKYLOSING SPONDYLITIS
     Route: 065
     Dates: start: 20020801, end: 20040801
  2. METHOTREXATE [Concomitant]
     Indication: ANKYLOSING SPONDYLITIS
     Dosage: UP TO 20 MG/WEEK
     Route: 065
  3. SULFASALAZINE [Concomitant]
     Indication: ANKYLOSING SPONDYLITIS
     Dosage: UP TO 3 MG/DAY
     Route: 065
  4. NSAID'S [Concomitant]
     Indication: ANKYLOSING SPONDYLITIS
     Dosage: UNSPECIFIED
     Route: 065
  5. PREDNISONE TAB [Concomitant]
     Indication: ANKYLOSING SPONDYLITIS
     Dosage: 10 MG EVERY 1 CYC
     Route: 065

REACTIONS (3)
  - ANKYLOSING SPONDYLITIS [None]
  - CONDITION AGGRAVATED [None]
  - SARCOIDOSIS [None]
